FAERS Safety Report 11617265 (Version 6)
Quarter: 2015Q4

REPORT INFORMATION
  Report Type: Spontaneous
  Country: US (occurrence: US)
  Receive Date: 20151009
  Receipt Date: 20151215
  Transmission Date: 20160304
  Serious: Yes (Hospitalization, Disabling)
  Sender: FDA-Public Use
  Company Number: US-ACTELION PHARMACEUTICALS US, INC.-A-NJ2015-124480

PATIENT
  Age: 59 Year
  Sex: Female

DRUGS (3)
  1. REVATIO [Concomitant]
     Active Substance: SILDENAFIL CITRATE
  2. VELETRI [Suspect]
     Active Substance: EPOPROSTENOL
     Indication: PULMONARY ARTERIAL HYPERTENSION
     Dosage: 60 NG/KG, PER MIN
     Route: 042
     Dates: start: 20150409
  3. TRACLEER [Suspect]
     Active Substance: BOSENTAN
     Indication: PULMONARY ARTERIAL HYPERTENSION
     Dosage: UNK
     Route: 048
     Dates: start: 20061018

REACTIONS (9)
  - Drug administration error [Unknown]
  - Feeling abnormal [Unknown]
  - Dementia Alzheimer^s type [Unknown]
  - Head discomfort [Unknown]
  - Headache [Recovered/Resolved]
  - Device infusion issue [Unknown]
  - Memory impairment [Recovering/Resolving]
  - Dizziness [Unknown]
  - Mental impairment [Unknown]
